FAERS Safety Report 7715147-1 (Version None)
Quarter: 2011Q3

REPORT INFORMATION
  Report Type: 
  Country: None (occurrence: None)
  Receive Date: 20110829
  Receipt Date: 20110818
  Transmission Date: 20111222
  Serious: Yes (Other)
  Sender: FDA-Public Use
  Company Number: PHHY2011CA54477

PATIENT
  Sex: Male

DRUGS (1)
  1. SANDOSTATIN LAR [Suspect]
     Indication: ACROMEGALY
     Dosage: 10 MG
     Route: 030
     Dates: start: 20110519

REACTIONS (2)
  - BLOOD PRESSURE SYSTOLIC INCREASED [None]
  - GASTROENTERITIS VIRAL [None]
